FAERS Safety Report 6317823-4 (Version None)
Quarter: 2009Q3

REPORT INFORMATION
  Report Type: 
  Country: None (occurrence: None)
  Receive Date: 20090820
  Receipt Date: 20090820
  Transmission Date: 20100115
  Serious: Yes (Hospitalization)
  Sender: FDA-Public Use
  Company Number: None

PATIENT
  Sex: Female

DRUGS (11)
  1. VANDETANIB, ASTRAZENECA, 100MG [Suspect]
     Indication: GLIOBLASTOMA
     Dosage: 100MG DAILY ORAL
     Route: 048
     Dates: start: 20090414, end: 20090816
  2. SIROLIMUS, ASTRAZENECA, 1MG [Suspect]
     Indication: RECURRENT CANCER
     Dosage: 1MG DAILY ORAL
     Route: 048
     Dates: start: 20090414, end: 20090816
  3. ACETAMINOPHEN [Concomitant]
  4. BACTRIM [Concomitant]
  5. DEXAMETHASONE [Concomitant]
  6. GRANISETRON HCL [Concomitant]
  7. LEVETIRACETAM [Concomitant]
  8. LORAZEPAM [Concomitant]
  9. MULTI-VITAMINS [Concomitant]
  10. NICODERM [Concomitant]
  11. RANITIDINE HCL [Concomitant]

REACTIONS (9)
  - ASTHENIA [None]
  - CONFUSIONAL STATE [None]
  - CONVULSION [None]
  - DISEASE PROGRESSION [None]
  - DYSARTHRIA [None]
  - FACIAL PALSY [None]
  - FACIAL PARESIS [None]
  - GAIT DISTURBANCE [None]
  - MEMORY IMPAIRMENT [None]
